FAERS Safety Report 14868698 (Version 3)
Quarter: 2018Q4

REPORT INFORMATION
  Report Type: Spontaneous
  Country: US (occurrence: US)
  Receive Date: 20180509
  Receipt Date: 20181018
  Transmission Date: 20190204
  Serious: No
  Sender: FDA-Public Use
  Company Number: US-PFIZER INC-2018187146

PATIENT
  Age: 57 Year
  Sex: Female

DRUGS (2)
  1. CODEINE [Suspect]
     Active Substance: CODEINE
     Dosage: UNK
  2. PROCARDIA [Suspect]
     Active Substance: NIFEDIPINE
     Dosage: UNK

REACTIONS (1)
  - Drug hypersensitivity [Unknown]
